FAERS Safety Report 8157235-4 (Version None)
Quarter: 2012Q1

REPORT INFORMATION
  Report Type: 
  Country: None (occurrence: None)
  Receive Date: 20120222
  Receipt Date: 20120222
  Transmission Date: 20120608
  Serious: Yes (Other)
  Sender: FDA-Public Use
  Company Number: None

PATIENT
  Age: 21 Year
  Sex: Male
  Weight: 79.378 kg

DRUGS (1)
  1. TRAZODONE HYDROCHLORIDE [Suspect]

REACTIONS (6)
  - HALLUCINATION, VISUAL [None]
  - HALLUCINATION, TACTILE [None]
  - ABNORMAL DREAMS [None]
  - MOVEMENT DISORDER [None]
  - DYSPNOEA [None]
  - CHEST DISCOMFORT [None]
